FAERS Safety Report 19015390 (Version 1)
Quarter: 2021Q1

REPORT INFORMATION
  Report Type: Spontaneous
  Country: DE (occurrence: DE)
  Receive Date: 20210317
  Receipt Date: 20210317
  Transmission Date: 20210420
  Serious: Yes (Hospitalization)
  Sender: FDA-Public Use
  Company Number: DE-PBT-000416

PATIENT
  Age: 14 Year
  Weight: 42 kg

DRUGS (11)
  1. TACROLIMUS. [Suspect]
     Active Substance: TACROLIMUS
     Indication: RENAL TRANSPLANT
     Route: 048
     Dates: start: 201703
  2. FERROGLYCINE SULFATE COMPLEX [Concomitant]
     Active Substance: FERROGLYCINE SULFATE
     Indication: IRON DEFICIENCY
     Dosage: DAILY DOSE: 40 GTT DROP(S) EVERY DAYS
     Route: 048
  3. POTASSIUM PHOSPHATE MONOBASIC [Concomitant]
     Active Substance: POTASSIUM PHOSPHATE, MONOBASIC
     Indication: PRODUCT USED FOR UNKNOWN INDICATION
     Dosage: INDIKATION: HARNKONKREMENTE
     Route: 048
  4. AMLODIPINE [Concomitant]
     Active Substance: AMLODIPINE BESYLATE
     Indication: RENAL HYPERTENSION
     Dosage: DAILY DOSE: 10 MG MILLGRAM(S) EVERY DAYS 2 SEPARATED DOSES
     Route: 048
  5. PREDNISOLONE. [Suspect]
     Active Substance: PREDNISOLONE
     Indication: RENAL TRANSPLANT
     Dosage: DAILY DOSE: 5 MG MILLGRAM(S) EVERY DAYS
     Route: 048
  6. FUSIDATE SODIUM [Concomitant]
     Active Substance: FUSIDATE SODIUM
     Indication: STOMA SITE ERYTHEMA
     Route: 003
  7. ALFACALCIDOL [Concomitant]
     Active Substance: ALFACALCIDOL
     Indication: CHRONIC KIDNEY DISEASE-MINERAL AND BONE DISORDER
     Dosage: DAILY DOSE: 18 GTT DROP(S) EVERY DAYS
     Route: 048
  8. COLECALCIFEROL [Concomitant]
     Active Substance: CHOLECALCIFEROL
     Indication: CHRONIC KIDNEY DISEASE-MINERAL AND BONE DISORDER
     Dosage: DAILY DOSE: 8 GTT DROP(S) EVERY DAYS
     Route: 048
  9. SODIUM BICARBONATE. [Concomitant]
     Active Substance: SODIUM BICARBONATE
     Indication: ACIDOSIS
     Dosage: DAILY DOSE: 3 DF DOSAGE FORM EVERY DAYS 3 SEPARATED DOSES
     Route: 048
  10. MYCOPHENOLATE MOFETIL. [Suspect]
     Active Substance: MYCOPHENOLATE MOFETIL
     Indication: RENAL TRANSPLANT
     Dosage: DAILY DOSE: 800 MG MILLGRAM(S) EVERY DAYS 2 SEPARATED DOSES
     Route: 048
     Dates: start: 201011
  11. MAGNESIUM GLUTAMATE [Concomitant]
     Indication: BLOOD MAGNESIUM ABNORMAL
     Dosage: DAILY DOSE: 2 DF DOSAGE FORM EVERY DAYS
     Route: 048

REACTIONS (2)
  - Large intestine infection [Recovered/Resolved]
  - Gastroenteritis [Recovered/Resolved]

NARRATIVE: CASE EVENT DATE: 20190922
